FAERS Safety Report 15539768 (Version 1)
Quarter: 2018Q4

REPORT INFORMATION
  Report Type: Spontaneous
  Country: US (occurrence: US)
  Receive Date: 20181023
  Receipt Date: 20181023
  Transmission Date: 20190205
  Serious: No
  Sender: FDA-Public Use
  Company Number: US-CELGENEUS-USA-20181005539

PATIENT
  Age: 66 Year
  Sex: Male
  Weight: 86.26 kg

DRUGS (1)
  1. REVLIMID [Suspect]
     Active Substance: LENALIDOMIDE
     Indication: PLASMA CELL MYELOMA
     Dosage: 25 MILLIGRAM
     Route: 048
     Dates: start: 201809

REACTIONS (6)
  - Palpitations [Recovered/Resolved]
  - Fatigue [Unknown]
  - Weight decreased [Unknown]
  - Muscle spasms [Unknown]
  - Night sweats [Unknown]
  - Decreased appetite [Unknown]

NARRATIVE: CASE EVENT DATE: 201809
